FAERS Safety Report 16642541 (Version 5)
Quarter: 2020Q1

REPORT INFORMATION
  Report Type: Spontaneous
  Country: US (occurrence: US)
  Receive Date: 20190729
  Receipt Date: 20200318
  Transmission Date: 20200409
  Serious: Yes (Hospitalization, Other)
  Sender: FDA-Public Use
  Company Number: US-PFIZER INC-2019318418

PATIENT
  Age: 85 Year
  Sex: Female
  Weight: 76.64 kg

DRUGS (14)
  1. VITAMIN D [COLECALCIFEROL] [Concomitant]
     Active Substance: CHOLECALCIFEROL
     Dosage: 50 MG, UNK
  2. GELATIN [Concomitant]
     Active Substance: GELATIN
     Dosage: UNK
  3. PREVAGEN [APOAEQUORIN] [Concomitant]
     Dosage: UNK UNK, 1X/DAY (1 A DAY)
  4. LEVOTHYROXINE SODIUM. [Suspect]
     Active Substance: LEVOTHYROXINE SODIUM
     Dosage: 88 MG, 1X/DAY
  5. PREDNISONE. [Suspect]
     Active Substance: PREDNISONE
     Dosage: 5 MG, 1X/DAY
  6. LISINOPRIL. [Suspect]
     Active Substance: LISINOPRIL
     Dosage: 20 MG, 1X/DAY
  7. BROMELAIN [Concomitant]
     Active Substance: BROMELAINS
     Dosage: UNK
  8. COQ10 [UBIDECARENONE] [Concomitant]
     Active Substance: UBIDECARENONE
     Dosage: UNK
  9. CRAN BERRY [SOLIDAGO VIRGAUREA;THYMUS VULGARIS;VACCINIUM MACROCARPON;Z [Concomitant]
     Dosage: UNK
  10. GINGER ROOT [ZINGIBER OFFICINALE ROOT] [Concomitant]
     Dosage: UNK
  11. BEE POLLEN [Concomitant]
     Active Substance: BEE POLLEN
     Dosage: UNK
  12. XELJANZ XR [Suspect]
     Active Substance: TOFACITINIB CITRATE
     Indication: RHEUMATOID ARTHRITIS
     Dosage: 11 MG, 1X/DAY
  13. CALCIUM WITH VITAMIN D3 [CALCIUM;COLECALCIFEROL] [Concomitant]
     Dosage: UNK UNK, 2X/DAY ( 2 A DAY)
  14. GARLIC (DEODORIZED) [Concomitant]
     Dosage: UNK

REACTIONS (4)
  - Limb injury [Recovered/Resolved]
  - Enzyme level decreased [Unknown]
  - Localised infection [Unknown]
  - Nasopharyngitis [Unknown]

NARRATIVE: CASE EVENT DATE: 20190614
